FAERS Safety Report 20586307 (Version 2)
Quarter: 2022Q3

REPORT INFORMATION
  Report Type: Spontaneous
  Country: US (occurrence: US)
  Receive Date: 20220313
  Receipt Date: 20220710
  Transmission Date: 20221026
  Serious: No
  Sender: FDA-Public Use
  Company Number: US-TEVA-2022-US-2009525

PATIENT
  Sex: Female

DRUGS (1)
  1. AJOVY [Suspect]
     Active Substance: FREMANEZUMAB-VFRM
     Indication: Migraine
     Dosage: 7.5 MILLIGRAM DAILY; STRENGTH: 225MG /1.5 ML
     Route: 058
     Dates: start: 20211230

REACTIONS (3)
  - Device malfunction [Unknown]
  - Injection site bruising [Unknown]
  - Incorrect dose administered by device [Unknown]
